FAERS Safety Report 17121589 (Version 2)
Quarter: 2020Q2

REPORT INFORMATION
  Report Type: Report from Study
  Country: US (occurrence: US)
  Receive Date: 20191206
  Receipt Date: 20200413
  Transmission Date: 20200713
  Serious: Yes (Hospitalization)
  Sender: FDA-Public Use
  Company Number: US-EISAI MEDICAL RESEARCH-EC-2019-066371

PATIENT
  Age: 83 Year
  Sex: Male
  Weight: 68.9 kg

DRUGS (2)
  1. LENVIMA [Suspect]
     Active Substance: LENVATINIB
     Indication: HEPATOCELLULAR CARCINOMA
     Route: 048
     Dates: start: 201909, end: 201911
  2. LENVIMA [Suspect]
     Active Substance: LENVATINIB
     Dosage: DOSE REDUCED (EXACT DOSE AND FREQUENCY UNKNOWN)
     Route: 048
     Dates: start: 201911, end: 2020

REACTIONS (8)
  - Nausea [Unknown]
  - Constipation [Unknown]
  - Ammonia increased [Unknown]
  - Feeling cold [Unknown]
  - Liver function test increased [Unknown]
  - Abdominal discomfort [Unknown]
  - Confusional state [Unknown]
  - Fatigue [Unknown]

NARRATIVE: CASE EVENT DATE: 201911
